FAERS Safety Report 16521898 (Version 2)
Quarter: 2019Q3

REPORT INFORMATION
  Report Type: Spontaneous
  Country: US (occurrence: US)
  Receive Date: 20190703
  Receipt Date: 20190705
  Transmission Date: 20191004
  Serious: Yes (Other)
  Sender: FDA-Public Use
  Company Number: US-RECKITT BENCKISER HEALTHCARE INT LIMITED-RB-86929-2019

PATIENT
  Age: 83 Year
  Sex: Female

DRUGS (1)
  1. DELSYM [Suspect]
     Active Substance: DEXTROMETHORPHAN
     Indication: PRODUCT USED FOR UNKNOWN INDICATION
     Dosage: PATIENT DRANK 2 ENTIRE BOTTLES AT AN UNKNOWN FREQUENCY, FREQUENCY OF USE: TWICE
     Route: 048
     Dates: start: 20190622, end: 20190622

REACTIONS (4)
  - Somnolence [Recovering/Resolving]
  - Dizziness [Recovered/Resolved]
  - Drug abuse [Recovering/Resolving]
  - Overdose [Recovering/Resolving]

NARRATIVE: CASE EVENT DATE: 201906
